FAERS Safety Report 18907112 (Version 1)
Quarter: 2021Q1

REPORT INFORMATION
  Report Type: Spontaneous
  Country: US (occurrence: US)
  Receive Date: 20210217
  Receipt Date: 20210217
  Transmission Date: 20210420
  Serious: No
  Sender: FDA-Public Use
  Company Number: US-SA-2021SA051599

PATIENT
  Age: 67 Year
  Sex: Female

DRUGS (22)
  1. TRAMADOL. [Concomitant]
     Active Substance: TRAMADOL
  2. DILTIAZEM. [Concomitant]
     Active Substance: DILTIAZEM
  3. ALPRAZOLAM. [Concomitant]
     Active Substance: ALPRAZOLAM
  4. SYMBICORT [Concomitant]
     Active Substance: BUDESONIDE\FORMOTEROL FUMARATE DIHYDRATE
  5. MONTELUKAST [Concomitant]
     Active Substance: MONTELUKAST SODIUM
  6. INCRUSE ELLIPTA [Concomitant]
     Active Substance: UMECLIDINIUM BROMIDE
  7. OXYBUTYNIN. [Concomitant]
     Active Substance: OXYBUTYNIN CHLORIDE
  8. LAMOTRIGINE. [Concomitant]
     Active Substance: LAMOTRIGINE
  9. ATORVASTATIN [Concomitant]
     Active Substance: ATORVASTATIN
  10. DUPIXENT [Suspect]
     Active Substance: DUPILUMAB
     Indication: ASTHMA
     Dosage: 300 MG, QOW
     Route: 058
  11. TIZANIDINE. [Concomitant]
     Active Substance: TIZANIDINE
  12. FLUOXETINE [Concomitant]
     Active Substance: FLUOXETINE HYDROCHLORIDE
  13. NORCO [Concomitant]
     Active Substance: ACETAMINOPHEN\HYDROCODONE BITARTRATE
  14. PROPAFENONE. [Concomitant]
     Active Substance: PROPAFENONE
  15. MECLIZINE [Concomitant]
     Active Substance: MECLIZINE HYDROCHLORIDE
  16. CREON [Concomitant]
     Active Substance: PANCRELIPASE AMYLASE\PANCRELIPASE LIPASE\PANCRELIPASE PROTEASE
  17. DEXILANT [Concomitant]
     Active Substance: DEXLANSOPRAZOLE
  18. LEVEMIR [Concomitant]
     Active Substance: INSULIN DETEMIR
  19. LOSARTAN. [Concomitant]
     Active Substance: LOSARTAN
  20. LYRICA [Concomitant]
     Active Substance: PREGABALIN
  21. MOMETASONE [Concomitant]
     Active Substance: MOMETASONE
  22. HUMALOG [Concomitant]
     Active Substance: INSULIN LISPRO

REACTIONS (2)
  - Product dose omission issue [Not Recovered/Not Resolved]
  - Dyspnoea [Not Recovered/Not Resolved]
